FAERS Safety Report 6741432-6 (Version None)
Quarter: 2010Q2

REPORT INFORMATION
  Report Type: 
  Country: None (occurrence: None)
  Receive Date: 20100526
  Receipt Date: 20100521
  Transmission Date: 20101027
  Serious: Yes (Other)
  Sender: FDA-Public Use
  Company Number: JP-SANOFI-AVENTIS-200812948JP

PATIENT
  Age: 60 Year
  Sex: Male
  Weight: 45 kg

DRUGS (7)
  1. LEFLUNOMIDE [Suspect]
     Indication: RHEUMATOID ARTHRITIS
     Route: 048
     Dates: start: 20050927, end: 20050928
  2. LEFLUNOMIDE [Suspect]
     Route: 048
     Dates: start: 20050929, end: 20051214
  3. LEFLUNOMIDE [Suspect]
     Route: 048
     Dates: start: 20051215, end: 20060426
  4. OMEPRAZOLE [Concomitant]
     Indication: GASTRITIS PROPHYLAXIS
     Route: 048
  5. ERISPAN [Concomitant]
     Indication: MUSCLE TIGHTNESS
     Dosage: DOSE AS USED: 2 TABLETS
     Route: 048
  6. GASMOTIN [Concomitant]
     Indication: ABDOMINAL DISTENSION
     Route: 048
  7. PREDNISOLONE [Concomitant]
     Indication: RHEUMATOID ARTHRITIS
     Route: 048

REACTIONS (6)
  - ALANINE AMINOTRANSFERASE INCREASED [None]
  - ASPARTATE AMINOTRANSFERASE INCREASED [None]
  - BLOOD ALKALINE PHOSPHATASE INCREASED [None]
  - BLOOD LACTATE DEHYDROGENASE INCREASED [None]
  - GAMMA-GLUTAMYLTRANSFERASE INCREASED [None]
  - PANCYTOPENIA [None]
